FAERS Safety Report 5890349-8 (Version None)
Quarter: 2008Q3

REPORT INFORMATION
  Report Type: 
  Country: None (occurrence: None)
  Receive Date: 20080918
  Receipt Date: 20080902
  Transmission Date: 20090109
  Serious: Yes (Death)
  Sender: FDA-Public Use
  Company Number: 2008S1015169

PATIENT
  Sex: Female

DRUGS (2)
  1. BYSTOLIC [Suspect]
     Dosage: 5 MG;DAILY;ORAL
     Route: 048
     Dates: start: 20080101, end: 20080101
  2. TOPROL-XL [Suspect]
     Dosage: 200 MG;DAILY;ORAL
     Route: 048

REACTIONS (4)
  - DRUG INTERACTION [None]
  - HEART RATE DECREASED [None]
  - MEDICATION ERROR [None]
  - RENAL FAILURE [None]
